FAERS Safety Report 6702660-9 (Version None)
Quarter: 2010Q2

REPORT INFORMATION
  Report Type: 
  Country: None (occurrence: None)
  Receive Date: 20100429
  Receipt Date: 20100421
  Transmission Date: 20101027
  Serious: Yes (Hospitalization)
  Sender: FDA-Public Use
  Company Number: US-ASTRAZENECA-2010SE17728

PATIENT

DRUGS (3)
  1. SEROQUEL XR [Suspect]
     Route: 048
  2. EFFEXOR [Concomitant]
  3. WELLBUTRIN [Concomitant]

REACTIONS (1)
  - SEROTONIN SYNDROME [None]
